FAERS Safety Report 7947626 (Version 5)
Quarter: 2012Q4

REPORT INFORMATION
  Report Type: 
  Country: US (occurrence: US)
  Receive Date: 20110517
  Receipt Date: 20121109
  Transmission Date: 20130627
  Serious: Yes (Hospitalization, Other)
  Sender: FDA-Public Use
  Company Number: US-US-EMD SERONO, INC.-7058874

PATIENT
  Sex: Female
  Weight: 59 kg

DRUGS (3)
  1. REBIF [Suspect]
     Indication: MULTIPLE SCLEROSIS
     Route: 058
     Dates: start: 20070903
  2. ASACOL [Concomitant]
     Indication: PRODUCT USED FOR UNKNOWN INDICATION
  3. COUMADIN [Concomitant]
     Indication: PRODUCT USED FOR UNKNOWN INDICATION

REACTIONS (18)
  - Malignant melanoma [Not Recovered/Not Resolved]
  - Crohn^s disease [Not Recovered/Not Resolved]
  - Coeliac disease [Not Recovered/Not Resolved]
  - Colitis ulcerative [Not Recovered/Not Resolved]
  - Bacterial infection [Not Recovered/Not Resolved]
  - Oesophageal stenosis [Not Recovered/Not Resolved]
  - Renal disorder [Not Recovered/Not Resolved]
  - Hip arthroplasty [Unknown]
  - Catheter site infection [Recovered/Resolved]
  - Staphylococcal infection [Recovering/Resolving]
  - Cognitive disorder [Unknown]
  - Anxiety [Unknown]
  - Incoherent [Unknown]
  - Paranoia [Unknown]
  - Adverse drug reaction [Unknown]
  - Hypoaesthesia [Unknown]
  - Depression [Not Recovered/Not Resolved]
  - Injection site reaction [Recovered/Resolved]
